FAERS Safety Report 15584262 (Version 1)
Quarter: 2018Q4

REPORT INFORMATION
  Report Type: Spontaneous
  Country: US (occurrence: US)
  Receive Date: 20181105
  Receipt Date: 20181105
  Transmission Date: 20190205
  Serious: No
  Sender: FDA-Public Use
  Company Number: US-SA-2018SA303620

PATIENT
  Age: 49 Year
  Sex: Male

DRUGS (5)
  1. DUPILUMAB [Suspect]
     Active Substance: DUPILUMAB
     Dosage: 300 MG, QOW
     Dates: start: 20180315
  2. BREO ELLIPTA [Concomitant]
     Active Substance: FLUTICASONE FUROATE\VILANTEROL TRIFENATATE
  3. TRIAMCINOLONE [Concomitant]
     Active Substance: TRIAMCINOLONE
  4. SINGULAIR [Concomitant]
     Active Substance: MONTELUKAST SODIUM
  5. DUPILUMAB [Suspect]
     Active Substance: DUPILUMAB
     Dosage: 600 MG, 1X
     Dates: start: 20180301, end: 20180301

REACTIONS (3)
  - Rash pruritic [Unknown]
  - Rash [Unknown]
  - Skin exfoliation [Unknown]

NARRATIVE: CASE EVENT DATE: 20180416
